FAERS Safety Report 20779990 (Version 1)
Quarter: 2022Q2

REPORT INFORMATION
  Report Type: Spontaneous
  Country: CN (occurrence: CN)
  Receive Date: 20220503
  Receipt Date: 20220503
  Transmission Date: 20220721
  Serious: Yes (Other)
  Sender: FDA-Public Use
  Company Number: CN-BAXTER-2022BAX009599

PATIENT
  Age: 67 Year
  Sex: Female
  Weight: 50 kg

DRUGS (2)
  1. CYCLOPHOSPHAMIDE [Suspect]
     Active Substance: CYCLOPHOSPHAMIDE
     Indication: Plasma cell myeloma
     Dosage: 0.9% NS INJECTION 100 ML + CYCLOPHOSPHAMIDE 0.2 G IVGTT ONCE TIME WITH DROP SPEED OF 30-40 DRIPS/MIN
     Route: 041
     Dates: start: 20220427, end: 20220427
  2. SODIUM CHLORIDE [Suspect]
     Active Substance: SODIUM CHLORIDE
     Indication: Medication dilution
     Dosage: 0.9% NS 100 ML + CYCLOPHOSPHAMIDE 0.2 G IVGTT ONCE TIME WITH DROP SPEED OF 30-40 DRIPS/MIN
     Route: 041

REACTIONS (6)
  - Orbital oedema [Recovering/Resolving]
  - Rash [Recovering/Resolving]
  - Swelling [Recovering/Resolving]
  - Pruritus [Recovering/Resolving]
  - Urticaria [Recovering/Resolving]
  - Erythema [Recovering/Resolving]

NARRATIVE: CASE EVENT DATE: 20220427
